FAERS Safety Report 9748682 (Version 1)
Quarter: 2013Q4

REPORT INFORMATION
  Report Type: Spontaneous
  Country: US (occurrence: US)
  Receive Date: 20131212
  Receipt Date: 20131212
  Transmission Date: 20140711
  Serious: No
  Sender: FDA-Public Use
  Company Number: US-B.I. PHARMACEUTICALS,INC./RIDGEFIELD-2013-BI-39340BP

PATIENT
  Age: 78 Year
  Sex: Female
  Weight: 69 kg

DRUGS (9)
  1. MICARDIS [Suspect]
     Indication: HYPERTENSION
     Dosage: 80 MG
     Route: 048
     Dates: start: 201105, end: 20131103
  2. ALIGN [Concomitant]
     Indication: PROBIOTIC THERAPY
     Dosage: 1 ANZ
     Route: 048
     Dates: start: 1990
  3. ALIGN [Concomitant]
     Indication: DYSPEPSIA
  4. CALCIUM [Concomitant]
     Indication: SUPPLEMENTATION THERAPY
  5. LIBRIUM [Concomitant]
     Indication: ANXIETY
     Dates: start: 1993
  6. VITAMIN B 12 [Concomitant]
     Indication: SUPPLEMENTATION THERAPY
     Route: 030
  7. VITAMIN D3 [Concomitant]
     Indication: SUPPLEMENTATION THERAPY
     Dosage: 500 U
     Route: 048
  8. PLAVIX [Concomitant]
     Indication: CAROTID ARTERY OCCLUSION
     Dosage: 75 MG
     Route: 048
     Dates: start: 2003
  9. HCTZ [Concomitant]
     Indication: FLUID RETENTION

REACTIONS (2)
  - Alopecia [Not Recovered/Not Resolved]
  - Muscular weakness [Not Recovered/Not Resolved]
